FAERS Safety Report 6904090-3 (Version None)
Quarter: 2010Q3

REPORT INFORMATION
  Report Type: 
  Country: None (occurrence: None)
  Receive Date: 20100804
  Receipt Date: 20090319
  Transmission Date: 20110219
  Serious: No
  Sender: FDA-Public Use
  Company Number: US-PFIZER INC-2009161457

PATIENT
  Sex: Female
  Weight: 86.2 kg

DRUGS (1)
  1. LYRICA [Suspect]
     Indication: HERPES ZOSTER
     Dosage: 150 MG, 1X/DAY
     Route: 048
     Dates: start: 20090120, end: 20090101

REACTIONS (7)
  - DISORIENTATION [None]
  - DIZZINESS [None]
  - FATIGUE [None]
  - MALAISE [None]
  - OEDEMA PERIPHERAL [None]
  - SOMNOLENCE [None]
  - VOMITING [None]
